FAERS Safety Report 9744145 (Version 1)
Quarter: 2013Q4

REPORT INFORMATION
  Report Type: Spontaneous
  Country: US (occurrence: US)
  Receive Date: 20131210
  Receipt Date: 20131210
  Transmission Date: 20140711
  Serious: Yes (Hospitalization)
  Sender: FDA-Public Use
  Company Number: US-B.I. PHARMACEUTICALS,INC./RIDGEFIELD-2013-BI-40448BP

PATIENT
  Age: 66 Year
  Sex: Male
  Weight: 142 kg

DRUGS (6)
  1. PRADAXA [Suspect]
     Indication: ATRIAL FIBRILLATION
     Dosage: 300 MG
     Route: 048
     Dates: start: 201304
  2. LISINOPRIL [Concomitant]
     Dosage: 10 MG
     Route: 048
     Dates: start: 2007
  3. AMLODIPINE [Concomitant]
     Indication: ATRIAL FIBRILLATION
     Dosage: 5 MG
     Route: 048
     Dates: start: 2007
  4. FINESTARIDE [Concomitant]
     Indication: PROSTATOMEGALY
     Dosage: 5 MG
     Route: 048
     Dates: start: 2011
  5. ALLOPURINOL [Concomitant]
     Indication: GOUT
     Dosage: 300 MG
     Route: 048
     Dates: start: 2009
  6. SOTALOL [Concomitant]
     Indication: ATRIAL FIBRILLATION
     Dosage: 160 MG
     Route: 048
     Dates: start: 201311

REACTIONS (3)
  - Atrial fibrillation [Recovered/Resolved]
  - Atrial fibrillation [Recovered/Resolved]
  - Arthralgia [Not Recovered/Not Resolved]
